FAERS Safety Report 6440398-6 (Version None)
Quarter: 2009Q4

REPORT INFORMATION
  Report Type: 
  Country: None (occurrence: None)
  Receive Date: 20091113
  Receipt Date: 20091106
  Transmission Date: 20100525
  Serious: Yes (Hospitalization)
  Sender: FDA-Public Use
  Company Number: PHHO2009CO13122

PATIENT
  Sex: Male
  Weight: 82 kg

DRUGS (3)
  1. TACROLIMUS COMP-TAC+ [Suspect]
     Indication: LIVER TRANSPLANT
     Dosage: OPEN LABEL
     Route: 048
  2. RAD 666 RAD+TAB [Suspect]
     Indication: LIVER TRANSPLANT
     Dosage: OPEN LABEL
     Route: 048
     Dates: start: 20090428, end: 20090914
  3. PREDNISOLONE [Concomitant]
     Indication: PROPHYLAXIS AGAINST TRANSPLANT REJECTION
     Dosage: UNK
     Dates: start: 20090408

REACTIONS (2)
  - DRUG INEFFECTIVE [None]
  - TRANSPLANT REJECTION [None]
